FAERS Safety Report 22533872 (Version 1)
Quarter: 2023Q2

REPORT INFORMATION
  Report Type: Report from Study
  Country: AU (occurrence: AU)
  Receive Date: 20230608
  Receipt Date: 20230608
  Transmission Date: 20230722
  Serious: Yes (Hospitalization)
  Sender: FDA-Public Use
  Company Number: AU-ABBVIE-5280556

PATIENT
  Sex: Female

DRUGS (2)
  1. CARBIDOPA\LEVODOPA [Suspect]
     Active Substance: CARBIDOPA\LEVODOPA
     Indication: Parkinson^s disease
     Dosage: 16HRS, 100ML GEL CASSETTE, CR: 3.0
     Route: 050
     Dates: start: 20141124, end: 2023
  2. CARBIDOPA\LEVODOPA [Suspect]
     Active Substance: CARBIDOPA\LEVODOPA
     Dosage: CR: 2.8MLS
     Route: 050
     Dates: start: 2023

REACTIONS (3)
  - Skin laceration [Unknown]
  - Fall [Unknown]
  - Dyskinesia [Unknown]

NARRATIVE: CASE EVENT DATE: 20230101
